FAERS Safety Report 8935499 (Version 1)
Quarter: 2012Q4

REPORT INFORMATION
  Report Type: Spontaneous
  Country: US (occurrence: None)
  Receive Date: 20121128
  Receipt Date: 20121128
  Transmission Date: 20130627
  Serious: No
  Sender: FDA-Public Use
  Company Number: None

PATIENT
  Age: 52 Year
  Sex: Female
  Weight: 83.92 kg

DRUGS (1)
  1. TRIAMCINOLONE [Suspect]
     Indication: MULTIPLE ALLERGIES
     Dosage: one spray once daily Nasal
     Route: 045
     Dates: start: 20120812, end: 20120821

REACTIONS (15)
  - Nasal discomfort [None]
  - Rhinitis [None]
  - Epistaxis [None]
  - Facial pain [None]
  - Swelling [None]
  - Mental impairment [None]
  - Malaise [None]
  - Fatigue [None]
  - Nasal dryness [None]
  - Device malfunction [None]
  - Product substitution issue [None]
  - Headache [None]
  - Nausea [None]
  - Infection [None]
  - Mucosal inflammation [None]
